FAERS Safety Report 8532498-1 (Version None)
Quarter: 2012Q3

REPORT INFORMATION
  Report Type: 
  Country: None (occurrence: None)
  Receive Date: 20120717
  Receipt Date: 20120717
  Transmission Date: 20120928
  Serious: Yes (Other)
  Sender: FDA-Public Use
  Company Number: None

PATIENT
  Age: 38 Year
  Sex: Female
  Weight: 82.5547 kg

DRUGS (1)
  1. TOPIRAMATE [Suspect]
     Indication: WEIGHT CONTROL
     Dosage: 1 PILL 1 PER DAY PO
     Route: 048
     Dates: start: 20120703, end: 20120712

REACTIONS (1)
  - VISUAL ACUITY REDUCED [None]
